FAERS Safety Report 15410835 (Version 1)
Quarter: 2018Q3

REPORT INFORMATION
  Report Type: Report from Study
  Country: None (occurrence: PL)
  Receive Date: 20180921
  Receipt Date: 20180921
  Transmission Date: 20181010
  Serious: Yes (Life-Threatening, Hospitalization)
  Sender: FDA-Public Use
  Company Number: PL-ABBVIE-18S-129-2490426-00

PATIENT
  Age: 78 Year
  Sex: Male
  Weight: 62.5 kg

DRUGS (5)
  1. MEBEVERINE HYDROCHLORIDE [Concomitant]
     Active Substance: MEBEVERINE HYDROCHLORIDE
     Indication: PRODUCT USED FOR UNKNOWN INDICATION
     Route: 048
  2. FERROSI GLUCONAS [Concomitant]
     Indication: PRODUCT USED FOR UNKNOWN INDICATION
     Route: 048
  3. DUODOPA [Suspect]
     Active Substance: CARBIDOPA\LEVODOPA
     Indication: PARKINSON^S DISEASE
     Dosage: 2.6ML/H; 5ML MORNING DOSE
     Route: 050
     Dates: start: 20180604, end: 20180708
  4. DIGOXIN. [Concomitant]
     Active Substance: DIGOXIN
     Indication: PRODUCT USED FOR UNKNOWN INDICATION
     Route: 048
  5. VENLAFAXINE [Concomitant]
     Active Substance: VENLAFAXINE HYDROCHLORIDE
     Indication: PRODUCT USED FOR UNKNOWN INDICATION
     Route: 048

REACTIONS (13)
  - Abdominal pain [Recovering/Resolving]
  - Discoloured vomit [Recovering/Resolving]
  - Asthenia [Recovering/Resolving]
  - C-reactive protein increased [Recovering/Resolving]
  - Flatulence [Recovered/Resolved]
  - Pyrexia [Recovering/Resolving]
  - White blood cell count increased [Recovering/Resolving]
  - Polyneuropathy [Recovering/Resolving]
  - Musculoskeletal stiffness [Recovering/Resolving]
  - Gastrointestinal perforation [Recovering/Resolving]
  - Effusion [Recovering/Resolving]
  - Inflammatory marker increased [Recovering/Resolving]
  - Device leakage [Recovered/Resolved with Sequelae]

NARRATIVE: CASE EVENT DATE: 2018
